FAERS Safety Report 7961386-4 (Version None)
Quarter: 2011Q4

REPORT INFORMATION
  Report Type: 
  Country: None (occurrence: None)
  Receive Date: 20111207
  Receipt Date: 20111205
  Transmission Date: 20120403
  Serious: Yes (Death, Hospitalization, Disabling)
  Sender: FDA-Public Use
  Company Number: DE-GENZYME-CLOF-1001865

PATIENT
  Sex: Male
  Weight: 52 kg

DRUGS (6)
  1. DIURETICS [Concomitant]
     Indication: OEDEMA PERIPHERAL
     Dosage: UNK
     Route: 065
  2. EVOLTRA [Suspect]
     Indication: ACUTE LYMPHOCYTIC LEUKAEMIA
     Dosage: 40 MG/M2, QDX5
     Route: 065
     Dates: start: 20110615, end: 20110619
  3. FUROSEMIDE [Concomitant]
     Indication: PLEURAL EFFUSION
     Dosage: UNK
     Route: 042
  4. NEUPOGEN [Concomitant]
     Indication: PRODUCT USED FOR UNKNOWN INDICATION
     Dosage: QD
     Route: 065
  5. ASPARAGINASE [Suspect]
     Indication: ACUTE LYMPHOCYTIC LEUKAEMIA
     Dosage: 2.5 IU/M2, QDX5
     Route: 065
     Dates: start: 20110619, end: 20110708
  6. FUROSEMIDE [Concomitant]
     Indication: GENERALISED OEDEMA

REACTIONS (3)
  - CIRCULATORY COLLAPSE [None]
  - BRONCHOPULMONARY ASPERGILLOSIS [None]
  - AORTIC RUPTURE [None]
